FAERS Safety Report 11222809 (Version 1)
Quarter: 2015Q2

REPORT INFORMATION
  Report Type: Spontaneous
  Country: AE (occurrence: AE)
  Receive Date: 20150626
  Receipt Date: 20150626
  Transmission Date: 20150821
  Serious: Yes (Other)
  Sender: FDA-Public Use
  Company Number: AE-BRISTOL-MYERS SQUIBB COMPANY-BMS-2015-039941

PATIENT
  Age: 69 Year
  Sex: Female

DRUGS (2)
  1. ORENCIA [Suspect]
     Active Substance: ABATACEPT
     Indication: PRODUCT USED FOR UNKNOWN INDICATION
     Dosage: N/A
     Route: 042
  2. LEFLUNOMIDE. [Concomitant]
     Active Substance: LEFLUNOMIDE
     Indication: PRODUCT USED FOR UNKNOWN INDICATION
     Dosage: 20 MG, UNK
     Route: 065

REACTIONS (2)
  - Renal impairment [Unknown]
  - Dialysis [Unknown]
